FAERS Safety Report 15647842 (Version 5)
Quarter: 2019Q2

REPORT INFORMATION
  Report Type: Report from Study
  Country: CA (occurrence: CA)
  Receive Date: 20181122
  Receipt Date: 20190520
  Transmission Date: 20190711
  Serious: Yes (Hospitalization)
  Sender: FDA-Public Use
  Company Number: CA-TAKEDA-2018TUS033298

PATIENT
  Age: 58 Year
  Sex: Female

DRUGS (2)
  1. PONATINIB [Suspect]
     Active Substance: PONATINIB
     Indication: CHRONIC MYELOID LEUKAEMIA
     Dosage: UNK
     Route: 048
     Dates: start: 20181010
  2. PONATINIB [Interacting]
     Active Substance: PONATINIB
     Dosage: UNK
     Route: 048
     Dates: start: 20190108

REACTIONS (9)
  - Blood glucose decreased [Unknown]
  - Pancreatic enlargement [Unknown]
  - Drug interaction [Unknown]
  - Hyperglycaemia [Recovered/Resolved with Sequelae]
  - Pneumonia [Unknown]
  - Blood glucose increased [Unknown]
  - Adverse drug reaction [Unknown]
  - Hepatic enzyme increased [Unknown]
  - Delusion [Unknown]

NARRATIVE: CASE EVENT DATE: 20181102
